FAERS Safety Report 14558700 (Version 1)
Quarter: 2018Q1

REPORT INFORMATION
  Report Type: Other
  Country: None (occurrence: US)
  Receive Date: 20180221
  Receipt Date: 20180221
  Transmission Date: 20180509
  Serious: Yes (Other)
  Sender: FDA-Public Use
  Company Number: US-GUTHY-RENKER, LLC-2042410

PATIENT
  Sex: Female

DRUGS (2)
  1. IT COSMETICS BYE BYE FOUNDATION WITH SPF 50+ [Suspect]
     Active Substance: TITANIUM DIOXIDE\ZINC OXIDE
     Indication: PROPHYLAXIS AGAINST SOLAR RADIATION
     Route: 061
     Dates: start: 201702, end: 20180208
  2. SINGULAIR, ALLEGRA, NEB INHALERS, RESCUE INHALER, EPIPEN PRN [Concomitant]

REACTIONS (5)
  - Urticaria [Recovered/Resolved]
  - Lip disorder [None]
  - Dysphonia [None]
  - Ocular hyperaemia [None]
  - Swelling face [None]

NARRATIVE: CASE EVENT DATE: 20180208
